FAERS Safety Report 9602090 (Version 1)
Quarter: 2013Q4

REPORT INFORMATION
  Report Type: Spontaneous
  Country: US (occurrence: US)
  Receive Date: 20131007
  Receipt Date: 20131007
  Transmission Date: 20140711
  Serious: No
  Sender: FDA-Public Use
  Company Number: US-BRISTOL-MYERS SQUIBB COMPANY-19068428

PATIENT
  Sex: 0

DRUGS (1)
  1. NULOJIX [Suspect]

REACTIONS (1)
  - Kidney transplant rejection [Unknown]
